FAERS Safety Report 5490368-X (Version None)
Quarter: 2007Q4

REPORT INFORMATION
  Report Type: 
  Country: None (occurrence: None)
  Receive Date: 20071012
  Receipt Date: 20070508
  Transmission Date: 20080405
  Serious: Yes (Other)
  Sender: FDA-Public Use
  Company Number: WWISSUE-82

PATIENT

DRUGS (1)
  1. ABC PLUS CAPSULES                                            (ZEBUTOL) [Suspect]

REACTIONS (1)
  - DYSPEPSIA [None]
